FAERS Safety Report 5286596-9 (Version None)
Quarter: 2007Q2

REPORT INFORMATION
  Report Type: 
  Country: None (occurrence: None)
  Receive Date: 20070404
  Receipt Date: 20070328
  Transmission Date: 20071010
  Serious: Yes (Hospitalization)
  Sender: FDA-Public Use
  Company Number: US-GLAXOSMITHKLINE-A0639292C

PATIENT
  Age: 57 Year
  Sex: Female
  Weight: 72.7 kg

DRUGS (5)
  1. TOPOTECAN HYDROCHLORIDE [Suspect]
     Indication: OVARIAN CANCER
     Dosage: 2.16MG CYCLIC
     Route: 042
     Dates: start: 20061127, end: 20070222
  2. ERLOTINIB [Suspect]
     Indication: OVARIAN CANCER
     Dosage: 150MG PER DAY
     Route: 048
     Dates: start: 20061127, end: 20070222
  3. ATIVAN [Concomitant]
  4. ANZEMET [Concomitant]
  5. ARANESP [Concomitant]

REACTIONS (9)
  - CHEST PAIN [None]
  - DECREASED APPETITE [None]
  - DEHYDRATION [None]
  - DIARRHOEA [None]
  - DYSPNOEA [None]
  - NAUSEA [None]
  - PLEURAL EFFUSION [None]
  - PYREXIA [None]
  - VOMITING [None]
